FAERS Safety Report 5182606-8 (Version None)
Quarter: 2006Q4

REPORT INFORMATION
  Report Type: 
  Country: None (occurrence: None)
  Receive Date: 20061212
  Receipt Date: 20061130
  Transmission Date: 20070319
  Serious: Yes (Death)
  Sender: FDA-Public Use
  Company Number: 233040

PATIENT
  Age: 77 Year
  Sex: Female

DRUGS (15)
  1. RANIBIZUMAB(RANIBIZUMAB) PWDR + SOLVENT, INJECTION SOLN [Suspect]
     Indication: MACULAR DEGENERATION
     Dosage: INTRAVITREAL
     Dates: start: 20060320, end: 20060913
  2. LASIX [Concomitant]
  3. LISINOPRIL [Concomitant]
  4. LANOXIN [Concomitant]
  5. ACIPHEX [Concomitant]
  6. METHOTREXATE [Concomitant]
  7. CELEBREX [Concomitant]
  8. XANAX [Concomitant]
  9. LORTAB [Concomitant]
  10. FOLIC ACID [Concomitant]
  11. LIPITOR [Concomitant]
  12. MACUGEN (PEGAPTANIB) [Concomitant]
  13. LUCENTIS [Concomitant]
  14. PLAVIX [Concomitant]
  15. NITROGYLCERIN (NITROGLYCERIN) [Concomitant]

REACTIONS (1)
  - DEATH [None]
